FAERS Safety Report 9965110 (Version 1)
Quarter: 2014Q1

REPORT INFORMATION
  Report Type: Report from Study
  Country: US (occurrence: US)
  Receive Date: 20140305
  Receipt Date: 20140305
  Transmission Date: 20141002
  Serious: No
  Sender: FDA-Public Use
  Company Number: US-ABBVIE-13P-163-1128742-00

PATIENT
  Age: 63 Year
  Sex: Female

DRUGS (8)
  1. HUMIRA [Suspect]
     Indication: CROHN^S DISEASE
     Dates: start: 20130211
  2. IMODIUM [Concomitant]
     Indication: DIARRHOEA
     Dosage: UP TO 8 TABLETS
  3. ESTRADIOL [Concomitant]
     Indication: OESTROGEN REPLACEMENT THERAPY
     Dosage: 2MG DAILY
  4. WELLBUTRIN [Concomitant]
     Indication: DISABLED RELATIVE
  5. TIMOLOL [Concomitant]
     Indication: GLAUCOMA
     Dosage: 1 DROP EACH EYE, NIGHTLY
  6. TIMOLOL [Concomitant]
     Indication: PROPHYLAXIS
  7. AMITRIPTYLINE [Concomitant]
     Indication: INSOMNIA
     Dosage: AT SLEEP
  8. PREVACID [Concomitant]
     Indication: PRODUCT USED FOR UNKNOWN INDICATION

REACTIONS (3)
  - Fatigue [Not Recovered/Not Resolved]
  - Sensation of heaviness [Unknown]
  - Feeling abnormal [Unknown]
